FAERS Safety Report 21747403 (Version 1)
Quarter: 2022Q4

REPORT INFORMATION
  Report Type: Report from Study
  Country: KR (occurrence: KR)
  Receive Date: 20221219
  Receipt Date: 20221219
  Transmission Date: 20230113
  Serious: Yes (Other)
  Sender: FDA-Public Use
  Company Number: KR-TAKEDA-2022TUS097126

PATIENT

DRUGS (6)
  1. NIRAPARIB [Suspect]
     Active Substance: NIRAPARIB
     Indication: Product used for unknown indication
     Dosage: 200 MG, QD
     Route: 048
     Dates: start: 20210222, end: 20210307
  2. NIRAPARIB [Suspect]
     Active Substance: NIRAPARIB
     Dosage: 100 MG, QD
     Route: 048
     Dates: start: 20210308
  3. LANSOPRAZOLE [Concomitant]
     Active Substance: LANSOPRAZOLE
     Indication: Dyspepsia
     Dosage: 1 DF, QD (QD, 1 CAP)
     Route: 048
     Dates: start: 20210308, end: 20210323
  4. NORZYME (PANCREATIN) [Concomitant]
     Indication: Dyspepsia
     Dosage: 1 DF, TID (TID, 1 CAP)
     Route: 048
     Dates: start: 20210308, end: 20210408
  5. POLYBUTINE [Concomitant]
     Indication: Dyspepsia
     Dosage: 1 DF, BID (BID, 1 TAP)
     Route: 048
     Dates: start: 20210308, end: 20210323
  6. MAGNESIUM HYDROXIDE [Concomitant]
     Active Substance: MAGNESIUM HYDROXIDE
     Indication: Constipation
     Dosage: 1 DF, TID (TID, 1 TAB)
     Route: 048
     Dates: start: 20220523, end: 20220613

REACTIONS (1)
  - Hepatic failure [Recovering/Resolving]

NARRATIVE: CASE EVENT DATE: 20220523
